FAERS Safety Report 17163557 (Version 1)
Quarter: 2019Q4

REPORT INFORMATION
  Report Type: Spontaneous
  Country: US (occurrence: US)
  Receive Date: 20191217
  Receipt Date: 20191217
  Transmission Date: 20200122
  Serious: Yes (Other)
  Sender: FDA-Public Use
  Company Number: US-ROCHE-2492498

PATIENT
  Age: 30 Year
  Sex: Female

DRUGS (3)
  1. ACTEMRA [Suspect]
     Active Substance: TOCILIZUMAB
     Indication: NEUROMYELITIS OPTICA SPECTRUM DISORDER
     Route: 065
     Dates: start: 20191016, end: 20191016
  2. ACTEMRA [Suspect]
     Active Substance: TOCILIZUMAB
     Dosage: NEXT SCHEDULED DOSE IS DECEMBER
     Route: 042
     Dates: start: 20191101
  3. OCREVUS [Suspect]
     Active Substance: OCRELIZUMAB
     Indication: MULTIPLE SCLEROSIS
     Route: 042
     Dates: start: 2017, end: 201904

REACTIONS (4)
  - Off label use [Unknown]
  - Poor venous access [Not Recovered/Not Resolved]
  - Intentional product use issue [Unknown]
  - Neuromyelitis optica spectrum disorder [Unknown]

NARRATIVE: CASE EVENT DATE: 201904
